FAERS Safety Report 4683298-4 (Version None)
Quarter: 2005Q2

REPORT INFORMATION
  Report Type: 
  Country: None (occurrence: None)
  Receive Date: 20050606
  Receipt Date: 20050606
  Transmission Date: 20051028
  Serious: Yes (Hospitalization)
  Sender: FDA-Public Use
  Company Number: None

PATIENT
  Age: 45 Year
  Sex: Female
  Weight: 68.0396 kg

DRUGS (2)
  1. FENTANYL [Suspect]
     Indication: COMPLEX REGIONAL PAIN SYNDROME
     Dosage: 1 PATCH Q 60 HRS TRANSDERMAL
     Route: 062
     Dates: start: 20050510, end: 20050528
  2. FENTANYL [Suspect]
     Indication: PAIN
     Dosage: 1 PATCH Q 60 HRS TRANSDERMAL
     Route: 062
     Dates: start: 20050510, end: 20050528

REACTIONS (9)
  - BRONCHITIS [None]
  - CYANOSIS [None]
  - DRUG EFFECT DECREASED [None]
  - DRUG EFFECT INCREASED [None]
  - LOSS OF CONSCIOUSNESS [None]
  - MENTAL STATUS CHANGES [None]
  - PHARMACEUTICAL PRODUCT COMPLAINT [None]
  - PNEUMONIA [None]
  - RESPIRATORY FAILURE [None]
